FAERS Safety Report 16257569 (Version 7)
Quarter: 2019Q4

REPORT INFORMATION
  Report Type: Spontaneous
  Country: HR (occurrence: HR)
  Receive Date: 20190430
  Receipt Date: 20191018
  Transmission Date: 20200122
  Serious: Yes (Other)
  Sender: FDA-Public Use
  Company Number: HR-PFIZER INC-2019178513

PATIENT
  Age: 61 Year
  Sex: Female

DRUGS (7)
  1. BISOPROLOL [Concomitant]
     Active Substance: BISOPROLOL
     Dosage: 2.5 MG, 1X/DAY
     Route: 065
     Dates: start: 2017
  2. CLOPIDOGREL BISULFATE. [Suspect]
     Active Substance: CLOPIDOGREL BISULFATE
     Dosage: 75 MG, 1X/DAY
  3. ATORVASTATIN [Concomitant]
     Active Substance: ATORVASTATIN
     Dosage: 80 MG, 1X/DAY
     Route: 065
  4. AMLODIPINE BESILATE [Suspect]
     Active Substance: AMLODIPINE BESYLATE
     Dosage: 5 MG, UNK
     Dates: start: 2016
  5. ELIQUIS [Suspect]
     Active Substance: APIXABAN
     Indication: CEREBROVASCULAR ACCIDENT PROPHYLAXIS
     Dosage: 5 MG, 2X/DAY
     Route: 065
     Dates: start: 2017
  6. ACETYLSALICYLIC ACID [Concomitant]
     Active Substance: ASPIRIN
     Dosage: 100 MG, UNK
     Route: 065
  7. AMLODIPINE/RAMIPRIL [Concomitant]
     Dosage: 5/5 MG
     Route: 065
     Dates: start: 2017

REACTIONS (4)
  - Heart rate irregular [Recovered/Resolved]
  - Contraindicated product administered [Unknown]
  - Acute coronary syndrome [Unknown]
  - Blood creatinine decreased [Unknown]

NARRATIVE: CASE EVENT DATE: 2016
